FAERS Safety Report 4951667-0 (Version None)
Quarter: 2006Q1

REPORT INFORMATION
  Report Type: 
  Country: None (occurrence: None)
  Receive Date: 20060322
  Receipt Date: 20060322
  Transmission Date: 20060701
  Serious: Yes (Other)
  Sender: FDA-Public Use
  Company Number: None

PATIENT
  Age: 22 Year
  Sex: Male
  Weight: 84.369 kg

DRUGS (2)
  1. ZYPREXA ZYDIS [Suspect]
     Indication: AGGRESSION
     Dosage: 10MG   ONCE   PO
     Route: 048
     Dates: start: 20060114, end: 20060114
  2. ZYPREXA ZYDIS [Suspect]
     Indication: AGITATION
     Dosage: 10MG   ONCE   PO
     Route: 048
     Dates: start: 20060114, end: 20060114

REACTIONS (2)
  - ELECTROENCEPHALOGRAM ABNORMAL [None]
  - GRAND MAL CONVULSION [None]
